FAERS Safety Report 4728069-5 (Version None)
Quarter: 2005Q3

REPORT INFORMATION
  Report Type: 
  Country: None (occurrence: None)
  Receive Date: 20050729
  Receipt Date: 20050721
  Transmission Date: 20060218
  Serious: Yes (Other)
  Sender: FDA-Public Use
  Company Number: PHRM2005FR02143

PATIENT
  Age: 30 Year
  Sex: Female

DRUGS (2)
  1. ZOMETA [Suspect]
     Indication: METASTASES TO BONE
     Dosage: 4 MG, QMO
     Route: 042
  2. TECHNETIUM (99M TC) OXIDRONATE [Suspect]
     Indication: SCINTIGRAPHY
     Dates: start: 20050713, end: 20050713

REACTIONS (5)
  - ARTHRALGIA [None]
  - C-REACTIVE PROTEIN INCREASED [None]
  - DRUG INTERACTION [None]
  - HYPERTHERMIA [None]
  - MYALGIA [None]
